FAERS Safety Report 9063287 (Version 1)
Quarter: 2013Q1

REPORT INFORMATION
  Report Type: Spontaneous
  Country: IT (occurrence: IT)
  Receive Date: 20130131
  Receipt Date: 20130131
  Transmission Date: 20140127
  Serious: Yes (Hospitalization, Other)
  Sender: FDA-Public Use
  Company Number: IT-PFIZER INC-2013036138

PATIENT
  Age: 63 Year
  Sex: Male

DRUGS (3)
  1. TRIATEC [Suspect]
     Indication: HYPERTENSION
     Dosage: 10 MG, ONCE A DAY
     Route: 048
     Dates: start: 20121022, end: 20121024
  2. COTAREG [Suspect]
     Indication: HYPERTENSION
     Dosage: 1 UNIT, ONCE A DAY
     Route: 048
     Dates: start: 20121022, end: 20121024
  3. ATENOLOL [Concomitant]
     Dosage: UNK
     Dates: start: 20120724, end: 20121022

REACTIONS (5)
  - Headache [Recovering/Resolving]
  - Drug ineffective [Unknown]
  - Blood pressure inadequately controlled [Recovering/Resolving]
  - Hypertension [Recovering/Resolving]
  - Hypertensive crisis [Recovering/Resolving]
